FAERS Safety Report 7534814-6 (Version None)
Quarter: 2011Q2

REPORT INFORMATION
  Report Type: 
  Country: None (occurrence: None)
  Receive Date: 20110609
  Receipt Date: 20080917
  Transmission Date: 20111010
  Serious: Yes (Other)
  Sender: FDA-Public Use
  Company Number: PHHY2008CA21735

PATIENT
  Sex: Female

DRUGS (1)
  1. SANDOSTATIN LAR [Suspect]
     Indication: GLUCAGONOMA
     Dosage: 30 MG, QMO
     Route: 030
     Dates: start: 20030120

REACTIONS (1)
  - HERPES ZOSTER [None]
